FAERS Safety Report 5342080-5 (Version None)
Quarter: 2007Q2

REPORT INFORMATION
  Report Type: 
  Country: None (occurrence: None)
  Receive Date: 20070601
  Receipt Date: 20070524
  Transmission Date: 20071010
  Serious: Yes (Hospitalization)
  Sender: FDA-Public Use
  Company Number: BE-ABBOTT-06P-013-0348216-00

PATIENT
  Sex: Male
  Weight: 67 kg

DRUGS (15)
  1. HUMIRA [Suspect]
     Indication: RHEUMATOID ARTHRITIS
     Route: 058
     Dates: start: 20040816, end: 20051201
  2. HUMIRA [Suspect]
     Route: 058
     Dates: start: 20060915
  3. SINTROM [Concomitant]
     Indication: DRUG USE FOR UNKNOWN INDICATION
  4. BROTIZOLAM [Concomitant]
     Indication: DRUG USE FOR UNKNOWN INDICATION
  5. ARTHROTEC [Concomitant]
     Indication: RHEUMATOID ARTHRITIS
  6. TENOKMIN MINOK [Concomitant]
     Indication: HYPERTENSION
  7. CORUNO [Concomitant]
     Indication: ANGINA PECTORIS
  8. METHYLPREDNISOLONE 16MG TAB [Concomitant]
     Indication: RHEUMATOID ARTHRITIS
  9. CALCIUM CHLORIDE [Concomitant]
     Indication: DRUG USE FOR UNKNOWN INDICATION
  10. MILOTEN [Concomitant]
     Indication: DRUG USE FOR UNKNOWN INDICATION
  11. COUDIO ASPIRINA [Concomitant]
     Indication: DRUG USE FOR UNKNOWN INDICATION
  12. CLARITHROMYCIN [Concomitant]
     Indication: DRUG USE FOR UNKNOWN INDICATION
  13. PARACETAMOL [Concomitant]
     Indication: PAIN
  14. TETRAZEPAM [Concomitant]
     Indication: BACK PAIN
  15. COMMERCIAL HUMIRA [Concomitant]
     Indication: RHEUMATOID ARTHRITIS
     Route: 058
     Dates: start: 20040816

REACTIONS (1)
  - GANGRENE [None]
